FAERS Safety Report 5669595-4 (Version None)
Quarter: 2008Q1

REPORT INFORMATION
  Report Type: 
  Country: None (occurrence: None)
  Receive Date: 20080317
  Receipt Date: 20080305
  Transmission Date: 20080703
  Serious: Yes (Other)
  Sender: FDA-Public Use
  Company Number: PHEH2008US02513

PATIENT
  Sex: Female

DRUGS (1)
  1. GLEEVEC [Suspect]
     Indication: CHRONIC MYELOID LEUKAEMIA
     Dosage: UNK, QD
     Route: 048
     Dates: start: 20010101, end: 20060101

REACTIONS (6)
  - DIARRHOEA [None]
  - DIZZINESS [None]
  - GLAUCOMA [None]
  - HYPOAESTHESIA [None]
  - PARAESTHESIA [None]
  - PERIORBITAL OEDEMA [None]
